FAERS Safety Report 7720050-7 (Version None)
Quarter: 2011Q3

REPORT INFORMATION
  Report Type: 
  Country: None (occurrence: None)
  Receive Date: 20110831
  Receipt Date: 20110823
  Transmission Date: 20111222
  Serious: Yes (Hospitalization)
  Sender: FDA-Public Use
  Company Number: US-SP-2011-07510

PATIENT
  Age: 79 Year
  Sex: Female

DRUGS (3)
  1. THERACYS [Suspect]
     Indication: BLADDER CANCER
     Route: 042
     Dates: start: 20100623, end: 20100623
  2. SIMAVASTATIN [Concomitant]
  3. ASPIRIN [Concomitant]

REACTIONS (8)
  - SEPSIS [None]
  - VOMITING [None]
  - ASTHENIA [None]
  - METABOLIC ENCEPHALOPATHY [None]
  - BODY TEMPERATURE INCREASED [None]
  - INCORRECT DOSE ADMINISTERED [None]
  - CONFUSIONAL STATE [None]
  - ATAXIA [None]
